FAERS Safety Report 7228388-7 (Version None)
Quarter: 2011Q1

REPORT INFORMATION
  Report Type: 
  Country: None (occurrence: None)
  Receive Date: 20110114
  Receipt Date: 20110106
  Transmission Date: 20110831
  Serious: Yes (Death, Hospitalization)
  Sender: FDA-Public Use
  Company Number: US-MPIJNJ-2010-02698

PATIENT
  Sex: Male
  Weight: 99.1 kg

DRUGS (14)
  1. PANTOPRAZOLE [Concomitant]
     Indication: PRODUCT USED FOR UNKNOWN INDICATION
     Dosage: 40 MG, QD
  2. VENTOLIN HFA [Concomitant]
     Indication: PRODUCT USED FOR UNKNOWN INDICATION
     Dosage: 2 UNK, UNK
     Route: 055
  3. VELCADE [Suspect]
     Dosage: 0.7 UNK, UNK
     Route: 042
     Dates: start: 20100412, end: 20100422
  4. VFEND [Concomitant]
     Indication: PRODUCT USED FOR UNKNOWN INDICATION
     Dosage: 300 MG, BID
  5. PENTAMIDINE ISETHIONATE [Concomitant]
     Indication: PRODUCT USED FOR UNKNOWN INDICATION
     Dosage: 300 MG, Q4WEEKS
  6. MEPHYTON [Concomitant]
     Indication: PRODUCT USED FOR UNKNOWN INDICATION
     Dosage: 5 MG, QD
  7. ALLOPURINOL [Concomitant]
     Indication: PRODUCT USED FOR UNKNOWN INDICATION
     Dosage: 200 MG, QD
  8. VALACICLOVIR [Concomitant]
     Indication: PRODUCT USED FOR UNKNOWN INDICATION
     Dosage: 1 G, BID
  9. LORAZEPAM [Concomitant]
     Indication: NAUSEA
     Dosage: 0.5 MG, PRN
     Route: 048
  10. GABAPENTIN [Concomitant]
     Indication: PRODUCT USED FOR UNKNOWN INDICATION
     Dosage: 600 MG, TID
  11. OXYCODONE [Concomitant]
     Indication: PAIN
     Dosage: 5 MG, PRN
  12. PENICILLIN V POTASSIUM [Concomitant]
     Indication: PRODUCT USED FOR UNKNOWN INDICATION
     Dosage: 250 MG, UNK
  13. VELCADE [Suspect]
     Indication: ACUTE MYELOID LEUKAEMIA
     Dosage: 1.3 UNK, UNK
     Route: 042
     Dates: start: 20100322, end: 20100401
  14. VORINOSTAT [Suspect]
     Indication: PRODUCT USED FOR UNKNOWN INDICATION
     Dosage: 300 MG, CYCLIC
     Route: 048
     Dates: start: 20100503, end: 20100516

REACTIONS (3)
  - SUDDEN CARDIAC DEATH [None]
  - PYREXIA [None]
  - LUNG INFILTRATION [None]
